FAERS Safety Report 9758768 (Version 2)
Quarter: 2014Q2

REPORT INFORMATION
  Report Type: Spontaneous
  Country: US (occurrence: None)
  Receive Date: 20131216
  Receipt Date: 20140514
  Transmission Date: 20141212
  Serious: Yes (Hospitalization)
  Sender: FDA-Public Use
  Company Number: 074698

PATIENT
  Sex: Male

DRUGS (5)
  1. CIMZIA [Suspect]
     Indication: CROHN^S DISEASE
     Dosage: (400 MG 1X/MONTH)
     Dates: start: 20081024
  2. KEPPRA [Concomitant]
  3. PHENOBARBITAL [Concomitant]
  4. MULTIVITAMIN/00831701/ [Concomitant]
  5. IRON [Concomitant]

REACTIONS (1)
  - Intestinal obstruction [None]
